FAERS Safety Report 9767988 (Version 1)
Quarter: 2013Q4

REPORT INFORMATION
  Report Type: Spontaneous
  Country: US (occurrence: None)
  Receive Date: 20131217
  Receipt Date: 20131217
  Transmission Date: 20140711
  Serious: Yes (Hospitalization)
  Sender: FDA-Public Use
  Company Number: 083340

PATIENT
  Sex: Female
  Weight: 64 kg

DRUGS (1)
  1. CIMZIA [Suspect]
     Indication: RHEUMATOID ARTHRITIS
     Dosage: (400 MG 1X/WEEK, 4 DOSES SUBCUTANEOUS)

REACTIONS (1)
  - Demyelinating polyneuropathy [None]
